FAERS Safety Report 5452729-4 (Version None)
Quarter: 2007Q3

REPORT INFORMATION
  Report Type: 
  Country: None (occurrence: None)
  Receive Date: 20070914
  Receipt Date: 20070905
  Transmission Date: 20080115
  Serious: Yes (Hospitalization)
  Sender: FDA-Public Use
  Company Number: JP-ASTRAZENECA-2007AP05648

PATIENT
  Age: 10071 Day
  Sex: Female
  Weight: 54.8 kg

DRUGS (23)
  1. XYLOCAINE [Suspect]
     Indication: EPIDURAL ANAESTHESIA
     Dosage: TEST DOSE
     Route: 037
     Dates: start: 20070725, end: 20070725
  2. XYLOCAINE [Suspect]
     Route: 037
     Dates: start: 20070725, end: 20070725
  3. MARCAINE [Suspect]
     Indication: SPINAL ANAESTHESIA
     Route: 037
     Dates: start: 20070725, end: 20070725
  4. MARCAINE [Suspect]
     Route: 037
     Dates: start: 20070725, end: 20070725
  5. MARCAINE [Suspect]
     Route: 037
     Dates: start: 20070725, end: 20070725
  6. MARCAINE [Suspect]
     Route: 037
     Dates: start: 20070725, end: 20070725
  7. MARCAINE [Suspect]
     Route: 037
     Dates: start: 20070725, end: 20070725
  8. MARCAINE [Suspect]
     Route: 037
     Dates: start: 20070726, end: 20070726
  9. MARCAINE [Suspect]
     Route: 037
     Dates: start: 20070726, end: 20070726
  10. MARCAINE [Suspect]
     Route: 037
     Dates: start: 20070726, end: 20070726
  11. MARCAINE [Suspect]
     Route: 037
     Dates: start: 20070726, end: 20070726
  12. MARCAINE [Suspect]
     Route: 037
     Dates: start: 20070726, end: 20070726
  13. MARCAINE [Suspect]
     Route: 037
     Dates: start: 20070726, end: 20070726
  14. MARCAINE [Suspect]
     Route: 037
     Dates: start: 20070727, end: 20070727
  15. MARCAINE [Suspect]
     Route: 037
     Dates: start: 20070727, end: 20070727
  16. MARCAINE [Suspect]
     Route: 037
     Dates: start: 20070728, end: 20070728
  17. NAROPIN [Suspect]
     Indication: EPIDURAL ANAESTHESIA
     Route: 008
     Dates: start: 20070725, end: 20070725
  18. ATROPINE SULFATE [Concomitant]
     Indication: PREMEDICATION
     Route: 030
     Dates: start: 20070725, end: 20070725
  19. PRIMPERAN INJ [Concomitant]
     Indication: ANAESTHETIC PREMEDICATION
     Route: 042
     Dates: start: 20070725, end: 20070725
  20. FAMOTIDINE [Concomitant]
     Indication: PREMEDICATION
     Route: 048
     Dates: start: 20070725, end: 20070725
  21. BUPRENORPHINE HCL [Concomitant]
     Indication: PROCEDURAL PAIN
     Route: 008
     Dates: start: 20070725, end: 20070726
  22. RECTOS [Concomitant]
     Dates: start: 20070725, end: 20070726
  23. EFUNIKOL [Concomitant]
     Indication: ANTIBIOTIC PROPHYLAXIS
     Dates: start: 20070725, end: 20070726

REACTIONS (1)
  - DECUBITUS ULCER [None]
